FAERS Safety Report 10390412 (Version 1)
Quarter: 2014Q3

REPORT INFORMATION
  Report Type: Spontaneous
  Country: US (occurrence: US)
  Receive Date: 20140818
  Receipt Date: 20140818
  Transmission Date: 20150326
  Serious: No
  Sender: FDA-Public Use
  Company Number: US-PFIZER INC-2014228969

PATIENT
  Age: 70 Year
  Sex: Female
  Weight: 65.31 kg

DRUGS (19)
  1. NICOTROL [Suspect]
     Active Substance: NICOTINE
     Indication: SMOKING CESSATION THERAPY
     Dosage: UNK
     Dates: start: 20140126
  2. FERROUS SULFATE [Concomitant]
     Active Substance: FERROUS SULFATE\FERROUS SULFATE, DRIED
     Indication: ANAEMIA
     Dosage: 325 MG, 3X/DAY
  3. PILOCARPINE [Concomitant]
     Active Substance: PILOCARPINE
     Dosage: 5 MG, UNK
  4. LYRICA [Concomitant]
     Active Substance: PREGABALIN
     Indication: NERVOUS SYSTEM DISORDER
  5. NEXIUM [Concomitant]
     Active Substance: ESOMEPRAZOLE MAGNESIUM
     Dosage: UNK
  6. NORVASC [Concomitant]
     Active Substance: AMLODIPINE BESYLATE
     Dosage: UNK
  7. CLONIDINE. [Concomitant]
     Active Substance: CLONIDINE
     Dosage: UNK
  8. NITROGLYCERIN. [Concomitant]
     Active Substance: NITROGLYCERIN
     Dosage: UNK
  9. PREMARIN [Concomitant]
     Active Substance: ESTROGENS, CONJUGATED
     Dosage: UNK
  10. DIAZEPAM. [Concomitant]
     Active Substance: DIAZEPAM
     Dosage: 2 MG, UNK
  11. HYDROCODONE [Concomitant]
     Active Substance: HYDROCODONE
     Dosage: 5 MG, UNK
  12. RESTASIS [Concomitant]
     Active Substance: CYCLOSPORINE
     Dosage: 2 GTT, 2X/DAY
     Route: 047
  13. BABY ASPIRIN [Concomitant]
     Active Substance: ASPIRIN
     Dosage: UNK, 1X/DAY
  14. COUMADIN [Concomitant]
     Active Substance: WARFARIN SODIUM
     Indication: ANTICOAGULANT THERAPY
     Dosage: (6MG ONCE A DAY FIRST DAY OF THE WEEK AND 7MG ONCE A DAY FOR SECOND DAY OF THE WEEK AND 6MG THRE)UNK
  15. SIMVASTATIN. [Concomitant]
     Active Substance: SIMVASTATIN
     Indication: BLOOD CHOLESTEROL INCREASED
     Dosage: UNK
  16. LYRICA [Concomitant]
     Active Substance: PREGABALIN
     Indication: NERVOUS SYSTEM DISORDER
     Dosage: 150 MG, 3X/DAY
     Route: 048
     Dates: start: 2012
  17. LYRICA [Concomitant]
     Active Substance: PREGABALIN
     Indication: OXYGEN CONSUMPTION DECREASED
  18. PROZAC [Concomitant]
     Active Substance: FLUOXETINE HYDROCHLORIDE
     Dosage: UNK
  19. ALPRAZOLAM. [Concomitant]
     Active Substance: ALPRAZOLAM
     Dosage: UNK

REACTIONS (1)
  - Drug effect incomplete [Unknown]

NARRATIVE: CASE EVENT DATE: 201401
